FAERS Safety Report 12944216 (Version 2)
Quarter: 2017Q2

REPORT INFORMATION
  Report Type: Spontaneous
  Country: JP (occurrence: JP)
  Receive Date: 20161115
  Receipt Date: 20170509
  Transmission Date: 20170830
  Serious: Yes (Death, Hospitalization)
  Sender: FDA-Public Use
  Company Number: JP-BAYER-2016-218154

PATIENT
  Age: 89 Year
  Sex: Male
  Weight: 54 kg

DRUGS (8)
  1. TAKEPRON [Concomitant]
     Active Substance: LANSOPRAZOLE
     Indication: GASTROOESOPHAGEAL REFLUX DISEASE
     Dosage: DAILY DOSE 30 MG
     Route: 048
  2. XOFIGO [Suspect]
     Active Substance: RADIUM RA-223 DICHLORIDE
     Indication: PROSTATE CANCER STAGE IV
     Dosage: UNK
     Route: 042
     Dates: start: 20161216, end: 20161216
  3. DECADRON [Concomitant]
     Active Substance: DEXAMETHASONE
     Dosage: DAILY DOSE 2 MG
     Route: 048
     Dates: start: 20161023
  4. XOFIGO [Suspect]
     Active Substance: RADIUM RA-223 DICHLORIDE
     Indication: PROSTATE CANCER STAGE IV
     Dosage: UNK
     Route: 042
     Dates: start: 20161021, end: 20161021
  5. XOFIGO [Suspect]
     Active Substance: RADIUM RA-223 DICHLORIDE
     Indication: METASTASES TO BONE
     Dosage: UNK
     Route: 042
     Dates: start: 20161118, end: 20161118
  6. XOFIGO [Suspect]
     Active Substance: RADIUM RA-223 DICHLORIDE
     Indication: PROSTATE CANCER STAGE IV
     Dosage: UNK
     Route: 042
     Dates: start: 20170113, end: 20170113
  7. ENZALUTAMIDE [Suspect]
     Active Substance: ENZALUTAMIDE
     Dosage: UNK
     Route: 048
  8. DECADRON [Concomitant]
     Active Substance: DEXAMETHASONE
     Dosage: DAILY DOSE 1 MG
     Route: 048
     Dates: end: 20161022

REACTIONS (6)
  - Decreased appetite [Recovering/Resolving]
  - Malaise [Recovering/Resolving]
  - Erythropenia [Recovered/Resolved]
  - Nausea [Recovering/Resolving]
  - Prostate cancer stage IV [Fatal]
  - Nausea [None]

NARRATIVE: CASE EVENT DATE: 20161022
